FAERS Safety Report 11311968 (Version 2)
Quarter: 2015Q4

REPORT INFORMATION
  Report Type: Report from Study
  Country: US (occurrence: US)
  Receive Date: 20150727
  Receipt Date: 20151110
  Transmission Date: 20160304
  Serious: Yes (Hospitalization)
  Sender: FDA-Public Use
  Company Number: US-BIOGENIDEC-2015BI102701

PATIENT
  Age: 49 Year
  Sex: Female
  Weight: 122 kg

DRUGS (7)
  1. CVS VITAMIN B-6 [Concomitant]
  2. NORTRIPTYLINE HCL [Concomitant]
     Active Substance: NORTRIPTYLINE HYDROCHLORIDE
  3. TOPROL XL [Concomitant]
     Active Substance: METOPROLOL SUCCINATE
  4. TECFIDERA [Suspect]
     Active Substance: DIMETHYL FUMARATE
     Indication: MULTIPLE SCLEROSIS
     Route: 048
     Dates: start: 201310
  5. ASPIRIN. [Concomitant]
     Active Substance: ASPIRIN
  6. CVS VITAMIN D [Concomitant]
  7. CVS VITAMIN C CAPLET [Concomitant]

REACTIONS (1)
  - Cerebrovascular accident [Unknown]

NARRATIVE: CASE EVENT DATE: 20150618
